FAERS Safety Report 9666087 (Version 2)
Quarter: 2013Q4

REPORT INFORMATION
  Report Type: Report from Study
  Country: US (occurrence: US)
  Receive Date: 20131104
  Receipt Date: 20131126
  Transmission Date: 20140711
  Serious: Yes (Hospitalization)
  Sender: FDA-Public Use
  Company Number: US-US-EMD SERONO, INC.-7246536

PATIENT
  Age: 36 Year
  Sex: Male
  Weight: 51 kg

DRUGS (8)
  1. SEROSTIM [(SOMATROPIN (RDNA ORIGIN) FOR INJECTION)] [Suspect]
     Indication: HIV WASTING SYNDROME
     Route: 058
  2. FOLIC ACID [Concomitant]
     Indication: PRODUCT USED FOR UNKNOWN INDICATION
     Route: 048
  3. VITAMIN D                          /00107901/ [Concomitant]
     Indication: PRODUCT USED FOR UNKNOWN INDICATION
  4. TESTOSTERONE [Concomitant]
     Indication: PRODUCT USED FOR UNKNOWN INDICATION
     Route: 061
  5. HEPARIN [Concomitant]
     Indication: DEEP VEIN THROMBOSIS
  6. WARFARIN [Concomitant]
     Indication: DEEP VEIN THROMBOSIS
  7. LOVENOX                            /00889602/ [Concomitant]
     Indication: MYOCARDIAL BRIDGING
  8. PANTOPRAZOLE [Concomitant]
     Indication: GASTROOESOPHAGEAL REFLUX DISEASE

REACTIONS (8)
  - Ventricular dysfunction [Unknown]
  - Rhinovirus infection [Unknown]
  - Bronchiectasis [Unknown]
  - Pneumothorax [Not Recovered/Not Resolved]
  - Jugular vein thrombosis [Unknown]
  - Blood albumin decreased [Unknown]
  - Blood alkaline phosphatase increased [Unknown]
  - Inguinal hernia [Unknown]
